FAERS Safety Report 21495842 (Version 3)
Quarter: 2022Q4

REPORT INFORMATION
  Report Type: Report from Study
  Country: DE (occurrence: DE)
  Receive Date: 20221022
  Receipt Date: 20221102
  Transmission Date: 20230112
  Serious: Yes (Hospitalization)
  Sender: FDA-Public Use
  Company Number: DE-ABBVIE-4169995

PATIENT
  Age: 58 Year
  Sex: Male
  Weight: 125 kg

DRUGS (1)
  1. SKYRIZI [Suspect]
     Active Substance: RISANKIZUMAB-RZAA
     Indication: Psoriasis
     Route: 058
     Dates: start: 20201029

REACTIONS (2)
  - Secretion discharge [Recovered/Resolved]
  - Salivary gland cyst [Recovered/Resolved]

NARRATIVE: CASE EVENT DATE: 20220928
